FAERS Safety Report 7982809-0 (Version None)
Quarter: 2011Q4

REPORT INFORMATION
  Report Type: 
  Country: None (occurrence: None)
  Receive Date: 20111215
  Receipt Date: 20111206
  Transmission Date: 20120403
  Serious: Yes (Hospitalization)
  Sender: FDA-Public Use
  Company Number: US-BAYER-2011-085663

PATIENT
  Age: 41 Year
  Sex: Female
  Weight: 63 kg

DRUGS (4)
  1. VITAMIN TAB [Concomitant]
     Dosage: UNK
     Dates: start: 20080101
  2. YASMIN [Suspect]
     Dosage: UNK
     Dates: start: 20060801, end: 20070201
  3. YASMIN [Suspect]
     Dosage: UNK
     Dates: start: 20070701, end: 20070830
  4. YASMIN [Suspect]
     Indication: CONTRACEPTION
     Dosage: UNK
     Dates: start: 20020101, end: 20040101

REACTIONS (4)
  - PULMONARY INFARCTION [None]
  - PULMONARY EMBOLISM [None]
  - INJURY [None]
  - PAIN [None]
